FAERS Safety Report 20053257 (Version 1)
Quarter: 2021Q4

REPORT INFORMATION
  Report Type: Spontaneous
  Country: US (occurrence: None)
  Receive Date: 20211109
  Receipt Date: 20211109
  Transmission Date: 20220303
  Serious: Yes (Death)
  Sender: FDA-Public Use
  Company Number: None

PATIENT
  Age: 73 Year
  Sex: Male

DRUGS (1)
  1. TOBRAMYCIN [Suspect]
     Active Substance: TOBRAMYCIN
     Indication: Chronic obstructive pulmonary disease
     Dosage: DOSE OR AMOUNT: 300 MG/5ML
     Route: 055
     Dates: start: 20210716, end: 20211003

REACTIONS (1)
  - Death [None]

NARRATIVE: CASE EVENT DATE: 20211003
